FAERS Safety Report 10305508 (Version 1)
Quarter: 2014Q3

REPORT INFORMATION
  Report Type: Spontaneous
  Country: US (occurrence: None)
  Receive Date: 20140711
  Receipt Date: 20140711
  Transmission Date: 20150326
  Serious: Yes (Disabling)
  Sender: FDA-Public Use
  Company Number: None

PATIENT
  Age: 45 Year
  Sex: Female
  Weight: 63.5 kg

DRUGS (2)
  1. CIPROFLOXACIN. [Suspect]
     Active Substance: CIPROFLOXACIN
     Indication: SINUSITIS
     Dosage: 2 PILLS DAILY 8 DAYS, TWICE DAILY, TAKEN BY MOUTH
     Route: 048
     Dates: start: 20140105, end: 20140112
  2. CIPROFLOXACIN. [Suspect]
     Active Substance: CIPROFLOXACIN
     Indication: URINARY TRACT INFECTION
     Dosage: 2 PILLS DAILY 8 DAYS, TWICE DAILY, TAKEN BY MOUTH
     Route: 048
     Dates: start: 20140105, end: 20140112

REACTIONS (7)
  - Chondropathy [None]
  - Ear discomfort [None]
  - Hallucination [None]
  - Tendon disorder [None]
  - Impaired work ability [None]
  - Burning sensation [None]
  - Feeling abnormal [None]

NARRATIVE: CASE EVENT DATE: 20140103
